FAERS Safety Report 10026251 (Version 1)
Quarter: 2014Q1

REPORT INFORMATION
  Report Type: Spontaneous
  Country: US (occurrence: US)
  Receive Date: 20140320
  Receipt Date: 20140320
  Transmission Date: 20141002
  Serious: No
  Sender: FDA-Public Use
  Company Number: US-009507513-1403USA003084

PATIENT
  Age: 73 Year
  Sex: Male

DRUGS (4)
  1. COZAAR [Suspect]
     Indication: HYPERTENSION
     Dosage: 100 MG, BID
     Route: 048
     Dates: start: 201311, end: 201312
  2. COZAAR [Suspect]
     Dosage: UNK
     Dates: start: 201401
  3. METFORMIN [Concomitant]
  4. GLIMEPIRIDE [Concomitant]

REACTIONS (4)
  - Rash pruritic [Recovering/Resolving]
  - Rash pruritic [Not Recovered/Not Resolved]
  - Rash erythematous [Recovering/Resolving]
  - Rash erythematous [Not Recovered/Not Resolved]
